FAERS Safety Report 4441116-3 (Version None)
Quarter: 2004Q3

REPORT INFORMATION
  Report Type: 
  Country: None (occurrence: None)
  Receive Date: 20040902
  Receipt Date: 20040902
  Transmission Date: 20050211
  Serious: Yes (Hospitalization)
  Sender: FDA-Public Use
  Company Number: None

PATIENT
  Age: 63 Year
  Sex: Male
  Weight: 72.5755 kg

DRUGS (4)
  1. CISPLATIN [Suspect]
     Indication: CARCINOMA
  2. CISPLATIN [Suspect]
     Indication: GASTROINTESTINAL DISORDER
  3. FUDR [Suspect]
  4. LEUCOVORIN CALCIUM [Suspect]

REACTIONS (4)
  - DEHYDRATION [None]
  - DIARRHOEA [None]
  - NAUSEA [None]
  - VOMITING [None]
